FAERS Safety Report 5030557-1 (Version None)
Quarter: 2006Q2

REPORT INFORMATION
  Report Type: 
  Country: None (occurrence: None)
  Receive Date: 20060615
  Receipt Date: 20060531
  Transmission Date: 20061013
  Serious: Yes (Death)
  Sender: FDA-Public Use
  Company Number: 2006-06-0313

PATIENT
  Sex: Female

DRUGS (5)
  1. IMDUR [Suspect]
     Dosage: ORAL
     Route: 048
  2. ... [Suspect]
  3. -- [Suspect]
  4. /// [Suspect]
  5. ,,, [Suspect]

REACTIONS (1)
  - DEATH [None]
